FAERS Safety Report 5622573-3 (Version None)
Quarter: 2008Q1

REPORT INFORMATION
  Report Type: 
  Country: None (occurrence: None)
  Receive Date: 20080114
  Receipt Date: 20071113
  Transmission Date: 20080703
  Serious: Yes (Other)
  Sender: FDA-Public Use
  Company Number: A03200706537

PATIENT
  Age: 82 Year
  Sex: Female

DRUGS (30)
  1. PLAVIX [Suspect]
     Indication: STENT PLACEMENT
     Dosage: 75 MG QD - ORAL
     Route: 048
     Dates: start: 19980101
  2. TRAZODONE HCL [Concomitant]
  3. TRAMADOL HCL [Concomitant]
  4. ACETYLSALICYLIC ACID SRT [Concomitant]
  5. LANSOPRAZOLE [Concomitant]
  6. GLIPIZIDE [Concomitant]
  7. IRBESARTAN [Concomitant]
  8. PIOGLITAZONE HCL [Concomitant]
  9. METOPROLOL TARTRATE [Concomitant]
  10. FUROSEMIDE [Concomitant]
  11. POTASSIUM CHLORIDE [Concomitant]
  12. DOCUSATE SODIUM [Concomitant]
  13. MULTIVITAMIN [Concomitant]
  14. FEXOFENADINE HYDROCHLORIDE [Concomitant]
  15. EZETIMIBE [Concomitant]
  16. ATORVASTATIN CALCIUM [Concomitant]
  17. METAMUCIL [Concomitant]
  18. BUSPIRONE HYDROCHLORIDE [Concomitant]
  19. GLUCOSAMINE W/CHONDROTIN SULFATE [Concomitant]
  20. GLYCERYL TRINITRATE [Concomitant]
  21. CALCIUM [Concomitant]
  22. FERROUS GLUCONATE [Concomitant]
  23. PARACETAMOL [Concomitant]
  24. VITAMIN A AND D [Concomitant]
  25. VITAMIN E [Concomitant]
  26. CENTRUM SILVER [Concomitant]
  27. VITAMIN B-12 [Concomitant]
  28. ASCORBIC ACID [Concomitant]
  29. MAGNESIUM [Concomitant]
  30. ROPINIROLE HCL [Concomitant]

REACTIONS (3)
  - ANGINA PECTORIS [None]
  - CORONARY ARTERY OCCLUSION [None]
  - SKIN HAEMORRHAGE [None]
